FAERS Safety Report 4788687-5 (Version None)
Quarter: 2005Q4

REPORT INFORMATION
  Report Type: 
  Country: None (occurrence: None)
  Receive Date: 20051003
  Receipt Date: 20050324
  Transmission Date: 20060501
  Serious: Yes (Other)
  Sender: FDA-Public Use
  Company Number: 141081USA

PATIENT
  Age: 82 Year
  Sex: Female
  Weight: 68.0396 kg

DRUGS (8)
  1. SULFAMETHOXAZOLE + TRIMETHOPRIM [Suspect]
     Indication: URINARY TRACT INFECTION
     Dates: start: 20041204, end: 20041212
  2. ASCORBIC ACID [Concomitant]
  3. VITAMIN E [Concomitant]
  4. CENTROUM SILVER [Concomitant]
  5. WARFARIN [Concomitant]
  6. PACERONE [Concomitant]
  7. SYNTHROID [Concomitant]
  8. OMEGA [Concomitant]

REACTIONS (3)
  - ARTHRALGIA [None]
  - PETECHIAE [None]
  - RASH MACULAR [None]
